FAERS Safety Report 4781461-5 (Version None)
Quarter: 2005Q3

REPORT INFORMATION
  Report Type: 
  Country: None (occurrence: None)
  Receive Date: 20050927
  Receipt Date: 20050914
  Transmission Date: 20060218
  Serious: Yes (Hospitalization)
  Sender: FDA-Public Use
  Company Number: 2005130256

PATIENT
  Age: 67 Year
  Sex: Female

DRUGS (1)
  1. TRIAZOLAM [Suspect]
     Indication: ILL-DEFINED DISORDER
     Dosage: 0.25 MG, ORAL
     Route: 048

REACTIONS (14)
  - ABNORMAL BEHAVIOUR [None]
  - ASTERIXIS [None]
  - BLOOD CREATINE PHOSPHOKINASE INCREASED [None]
  - BLOOD THYROID STIMULATING HORMONE INCREASED [None]
  - DRUG WITHDRAWAL SYNDROME [None]
  - ELECTROENCEPHALOGRAM ABNORMAL [None]
  - EMOTIONAL DISTRESS [None]
  - ENCEPHALITIS [None]
  - EYE DISORDER [None]
  - METABOLIC ENCEPHALOPATHY [None]
  - NEUROLOGICAL SYMPTOM [None]
  - PERSONALITY CHANGE DUE TO A GENERAL MEDICAL CONDITION [None]
  - STATUS EPILEPTICUS [None]
  - STUPOR [None]
